FAERS Safety Report 10496041 (Version 1)
Quarter: 2014Q4

REPORT INFORMATION
  Report Type: Spontaneous
  Country: BR (occurrence: BR)
  Receive Date: 20141003
  Receipt Date: 20141003
  Transmission Date: 20150528
  Serious: Yes (Other)
  Sender: FDA-Public Use
  Company Number: BR-BAYER-2014-145294

PATIENT
  Age: 31 Year
  Sex: Male

DRUGS (1)
  1. ULTRAVIST [Suspect]
     Active Substance: IOPROMIDE
     Indication: COMPUTERISED TOMOGRAM HEAD
     Dosage: UNK
     Route: 042
     Dates: start: 20140829, end: 20140829

REACTIONS (7)
  - Hyperaemia [None]
  - Periorbital oedema [None]
  - Hypotension [None]
  - Cough [None]
  - Feeling abnormal [None]
  - Hyperhidrosis [None]
  - Conjunctival hyperaemia [None]

NARRATIVE: CASE EVENT DATE: 20140829
